FAERS Safety Report 12844114 (Version 1)
Quarter: 2016Q4

REPORT INFORMATION
  Report Type: Spontaneous
  Country: FR (occurrence: FR)
  Receive Date: 20161013
  Receipt Date: 20161013
  Transmission Date: 20170207
  Serious: Yes (Hospitalization, Other)
  Sender: FDA-Public Use
  Company Number: FR-PFIZER INC-2016470797

PATIENT
  Age: 86 Year
  Sex: Female

DRUGS (4)
  1. INEXIUM /01479302/ [Suspect]
     Active Substance: ESOMEPRAZOLE MAGNESIUM
     Dosage: 40 MG, 1X/DAY
     Route: 048
     Dates: end: 20160912
  2. LYRICA [Concomitant]
     Active Substance: PREGABALIN
  3. DOLIPRANE [Concomitant]
     Active Substance: ACETAMINOPHEN
  4. EFFEXOR LP [Suspect]
     Active Substance: VENLAFAXINE HYDROCHLORIDE
     Indication: DEPRESSION
     Dosage: 37.5 MG, 1X/DAY
     Route: 048
     Dates: end: 20160912

REACTIONS (4)
  - Hyponatraemia [Recovered/Resolved]
  - Fall [Unknown]
  - Pyrexia [Unknown]
  - Pyelonephritis acute [Unknown]

NARRATIVE: CASE EVENT DATE: 20160810
